FAERS Safety Report 8001502-1 (Version None)
Quarter: 2011Q4

REPORT INFORMATION
  Report Type: 
  Country: None (occurrence: None)
  Receive Date: 20111123
  Receipt Date: 20111003
  Transmission Date: 20120403
  Serious: No
  Sender: FDA-Public Use
  Company Number: 336446

PATIENT
  Age: 72 Year
  Sex: Female

DRUGS (1)
  1. VICTOZA [Suspect]
     Indication: TYPE 2 DIABETES MELLITUS
     Dosage: , SUBCUTANEOUS
     Route: 058
     Dates: start: 20110926

REACTIONS (9)
  - PARAESTHESIA [None]
  - DIZZINESS [None]
  - HEADACHE [None]
  - CHEST DISCOMFORT [None]
  - CONSTIPATION [None]
  - HEART RATE INCREASED [None]
  - TACHYCARDIA [None]
  - ANXIETY [None]
  - TREMOR [None]
